FAERS Safety Report 12219341 (Version 1)
Quarter: 2016Q1

REPORT INFORMATION
  Report Type: Report from Study
  Country: CA (occurrence: CA)
  Receive Date: 20160329
  Receipt Date: 20160329
  Transmission Date: 20160526
  Serious: Yes (Hospitalization, Other)
  Sender: FDA-Public Use
  Company Number: CA-ABBVIE-16P-028-1591216-00

PATIENT
  Sex: Male

DRUGS (1)
  1. HOLKIRA PAK [Suspect]
     Active Substance: DASABUVIR\OMBITASVIR\PARITAPREVIR\RITONAVIR
     Indication: CHRONIC HEPATITIS C
     Dosage: TREATMENT COMPLETED
     Route: 048
     Dates: start: 20150926, end: 20151219

REACTIONS (1)
  - Cerebral haematoma [Unknown]
